FAERS Safety Report 8535844-8 (Version None)
Quarter: 2012Q3

REPORT INFORMATION
  Report Type: 
  Country: None (occurrence: None)
  Receive Date: 20120725
  Receipt Date: 20120716
  Transmission Date: 20120928
  Serious: Yes (Hospitalization)
  Sender: FDA-Public Use
  Company Number: FR-SANOFI-AVENTIS-2012SA032388

PATIENT
  Age: 87 Year
  Sex: Female

DRUGS (7)
  1. LASIX [Suspect]
     Dosage: LONG-TERM THERAPY.
     Route: 048
  2. NEXIUM [Suspect]
     Dosage: LONG-TERM THERAPY.
     Route: 048
  3. SINTROM [Suspect]
     Indication: ATRIAL FIBRILLATION
     Dosage: LONG-TERM THERAPY. DOSE:0.25 UNIT(S)
     Route: 048
  4. LEVOTHYROXINE SODIUM [Suspect]
     Indication: HYPOTHYROIDISM
     Dosage: LONG-TERM THERAPY.
     Route: 048
  5. DIGOXIN [Suspect]
     Indication: ATRIAL FIBRILLATION
     Dosage: LONG-TERM THERAPY.
     Route: 048
     Dates: end: 20120417
  6. LYRICA [Suspect]
     Dosage: LONG-TERM THERAPY.
     Route: 048
  7. ESIDRIX [Suspect]
     Dosage: LONG-TERM THERAPY.
     Route: 048

REACTIONS (3)
  - CEREBRAL HYPOPERFUSION [None]
  - DECREASED APPETITE [None]
  - BRADYCARDIA [None]
